FAERS Safety Report 12704046 (Version 2)
Quarter: 2016Q3

REPORT INFORMATION
  Report Type: Spontaneous
  Country: SE (occurrence: SE)
  Receive Date: 20160831
  Receipt Date: 20160927
  Transmission Date: 20161109
  Serious: Yes (Hospitalization, Other)
  Sender: FDA-Public Use
  Company Number: SE-TEVA-686843ISR

PATIENT
  Age: 88 Year
  Sex: Male

DRUGS (2)
  1. STESOLID [Suspect]
     Active Substance: DIAZEPAM
     Dosage: DIAZEPAM DIFFERENT DOSAGE FORMS CONSISTING OF TABLETS, INJECTION, SUPPOSITORY
     Dates: start: 20160802, end: 20160816
  2. NOVUM [Concomitant]

REACTIONS (5)
  - Overdose [Recovering/Resolving]
  - Altered state of consciousness [Recovered/Resolved]
  - Cough [Recovering/Resolving]
  - Pulmonary oedema [Recovering/Resolving]
  - Speech disorder [Recovered/Resolved]

NARRATIVE: CASE EVENT DATE: 20160802
